FAERS Safety Report 11126563 (Version 1)
Quarter: 2015Q2

REPORT INFORMATION
  Report Type: Spontaneous
  Country: US (occurrence: US)
  Receive Date: 20150520
  Receipt Date: 20150520
  Transmission Date: 20150821
  Serious: No
  Sender: FDA-Public Use
  Company Number: US-009507513-1505USA006571

PATIENT

DRUGS (2)
  1. VICTRELIS [Suspect]
     Active Substance: BOCEPREVIR
     Route: 048
  2. TAMSULOSIN HYDROCHLORIDE. [Interacting]
     Active Substance: TAMSULOSIN HYDROCHLORIDE

REACTIONS (2)
  - Drug interaction [Unknown]
  - Priapism [Unknown]
